FAERS Safety Report 25373216 (Version 1)
Quarter: 2025Q2

REPORT INFORMATION
  Report Type: Other
  Country: CN (occurrence: CN)
  Receive Date: 20250529
  Receipt Date: 20250529
  Transmission Date: 20250717
  Serious: Yes (Hospitalization, Other)
  Sender: B BRAUN
  Company Number: CN-B.Braun Medical Inc.-2177634

PATIENT
  Age: 29 Year
  Sex: Male

DRUGS (5)
  1. HEPARIN SODIUM IN DEXTROSE [Suspect]
     Active Substance: HEPARIN SODIUM
     Indication: Respiratory failure
  2. IMIPENEM [Concomitant]
     Active Substance: IMIPENEM
  3. POLYMYXIN B [Concomitant]
     Active Substance: POLYMYXIN B
  4. LINEZOLID [Concomitant]
     Active Substance: LINEZOLID
  5. SULFAMETHOXAZOLE\TRIMETHOPRIM [Concomitant]
     Active Substance: SULFAMETHOXAZOLE\TRIMETHOPRIM

REACTIONS (1)
  - Traumatic haemothorax [Recovered/Resolved]
